FAERS Safety Report 8151353-2 (Version None)
Quarter: 2012Q1

REPORT INFORMATION
  Report Type: 
  Country: None (occurrence: None)
  Receive Date: 20120220
  Receipt Date: 20120210
  Transmission Date: 20120608
  Serious: Yes (Hospitalization, Other)
  Sender: FDA-Public Use
  Company Number: US-ELI_LILLY_AND_COMPANY-US201202003634

PATIENT
  Sex: Male

DRUGS (4)
  1. HUMALOG [Suspect]
     Dosage: 10 U, UNKNOWN
     Route: 065
     Dates: start: 20120101
  2. HUMALOG [Suspect]
     Dosage: 10 U, UNKNOWN
     Route: 065
     Dates: start: 20120101
  3. LANTUS [Concomitant]
     Dosage: UNK
  4. HUMALOG [Suspect]
     Indication: DIABETES MELLITUS
     Dosage: UNK, UNKNOWN
     Route: 065
     Dates: end: 20120101

REACTIONS (8)
  - CARDIAC OPERATION [None]
  - DIABETIC ULCER [None]
  - CORONARY ARTERIAL STENT INSERTION [None]
  - PULMONARY EMBOLISM [None]
  - VASCULAR GRAFT [None]
  - ARTERIAL THERAPEUTIC PROCEDURE [None]
  - CARDIAC FAILURE [None]
  - POST PROCEDURAL COMPLICATION [None]
